FAERS Safety Report 9486563 (Version 1)
Quarter: 2013Q3

REPORT INFORMATION
  Report Type: Spontaneous
  Country: GB (occurrence: GB)
  Receive Date: 20130829
  Receipt Date: 20130829
  Transmission Date: 20140515
  Serious: Yes (Other)
  Sender: FDA-Public Use
  Company Number: PHFR2013GB004803

PATIENT
  Age: 75 Year
  Sex: Female
  Weight: 60 kg

DRUGS (7)
  1. CICLOSPORIN [Suspect]
     Indication: PSORIASIS
  2. HUMIRA [Suspect]
     Indication: PSORIASIS
     Dosage: 40 MG, UNK
     Route: 058
     Dates: start: 20080904, end: 201303
  3. OMEPRAZOLE [Concomitant]
  4. SERETIDE [Concomitant]
  5. QUININE [Concomitant]
  6. CHLORPHENAMINE [Concomitant]
  7. CO-CODAMOL [Concomitant]

REACTIONS (2)
  - Vaginal discharge [Unknown]
  - Squamous cell carcinoma of the cervix [Unknown]
